FAERS Safety Report 17469004 (Version 1)
Quarter: 2020Q1

REPORT INFORMATION
  Report Type: Spontaneous
  Country: US (occurrence: US)
  Receive Date: 20200215
  Receipt Date: 20200215
  Transmission Date: 20200409
  Serious: Yes (Hospitalization)
  Sender: FDA-Public Use
  Company Number: None

PATIENT
  Age: 65 Year
  Sex: Male
  Weight: 118 kg

DRUGS (1)
  1. TEMOZOLOMIDE. [Suspect]
     Active Substance: TEMOZOLOMIDE
     Dates: end: 20200114

REACTIONS (7)
  - Headache [None]
  - Hyperhidrosis [None]
  - Procalcitonin increased [None]
  - Sinusitis [None]
  - Vomiting [None]
  - Hypotension [None]
  - Chills [None]

NARRATIVE: CASE EVENT DATE: 20200129
